FAERS Safety Report 14275299 (Version 1)
Quarter: 2017Q4

REPORT INFORMATION
  Report Type: Spontaneous
  Country: FR (occurrence: FR)
  Receive Date: 20171212
  Receipt Date: 20171212
  Transmission Date: 20180321
  Serious: Yes (Other)
  Sender: FDA-Public Use
  Company Number: FR-MERCK KGAA-2037024

PATIENT
  Age: 78 Year
  Sex: Female

DRUGS (1)
  1. NOVOTHYROX [Suspect]
     Active Substance: LEVOTHYROXINE SODIUM
     Indication: PRODUCT USED FOR UNKNOWN INDICATION

REACTIONS (5)
  - Blood thyroid stimulating hormone decreased [None]
  - Dysstasia [None]
  - Somnolence [None]
  - Loss of personal independence in daily activities [Not Recovered/Not Resolved]
  - Pulmonary embolism [None]

NARRATIVE: CASE EVENT DATE: 201706
